FAERS Safety Report 9234499 (Version 1)
Quarter: 2013Q2

REPORT INFORMATION
  Report Type: Spontaneous
  Country: US (occurrence: US)
  Receive Date: 20130416
  Receipt Date: 20130416
  Transmission Date: 20140414
  Serious: No
  Sender: FDA-Public Use
  Company Number: US-BANPHARM-20120257

PATIENT
  Age: 14 Year
  Sex: Female
  Weight: 44.44 kg

DRUGS (2)
  1. ALEVE LIQUID GELS 220 MG [Suspect]
     Indication: PAIN
     Dosage: 220 MG, ONCE,
     Route: 048
     Dates: start: 20121010, end: 20121010
  2. ALLEGRA [Concomitant]

REACTIONS (1)
  - Glossodynia [Recovered/Resolved]
